FAERS Safety Report 12632635 (Version 2)
Quarter: 2016Q3

REPORT INFORMATION
  Report Type: Spontaneous
  Country: US (occurrence: US)
  Receive Date: 20160808
  Receipt Date: 20160808
  Transmission Date: 20161109
  Serious: No
  Sender: FDA-Public Use
  Company Number: US-BEH-2015056341

PATIENT
  Sex: Female
  Weight: 63 kg

DRUGS (23)
  1. LAMICTAL [Concomitant]
     Active Substance: LAMOTRIGINE
  2. DIPHENHYDRAMINE. [Concomitant]
     Active Substance: DIPHENHYDRAMINE
  3. PROTON PUMP INHIBITORS [Concomitant]
     Active Substance: UNSPECIFIED INGREDIENT
  4. MUCINEX D [Concomitant]
     Active Substance: GUAIFENESIN\PSEUDOEPHEDRINE HYDROCHLORIDE
  5. PLAVIX [Concomitant]
     Active Substance: CLOPIDOGREL BISULFATE
  6. ZYPREXA [Concomitant]
     Active Substance: OLANZAPINE
  7. ZYRTEC [Concomitant]
     Active Substance: CETIRIZINE HYDROCHLORIDE
  8. EPIPEN [Concomitant]
     Active Substance: EPINEPHRINE
  9. RANITIDINE. [Concomitant]
     Active Substance: RANITIDINE
  10. CYMBALTA [Concomitant]
     Active Substance: DULOXETINE HYDROCHLORIDE
  11. CYTOTEC [Concomitant]
     Active Substance: MISOPROSTOL
  12. SEROQUEL [Concomitant]
     Active Substance: QUETIAPINE FUMARATE
  13. CLONAZEPAM. [Concomitant]
     Active Substance: CLONAZEPAM
  14. L-M-X [Concomitant]
  15. SPIRIVA [Concomitant]
     Active Substance: TIOTROPIUM BROMIDE MONOHYDRATE
  16. ADVAIR HFA [Concomitant]
     Active Substance: FLUTICASONE PROPIONATE\SALMETEROL XINAFOATE
  17. CEFDINIR. [Concomitant]
     Active Substance: CEFDINIR
  18. LYRICA [Concomitant]
     Active Substance: PREGABALIN
  19. COMPLETE MULTIVITAMIN [Concomitant]
     Active Substance: VITAMINS
  20. HIZENTRA [Suspect]
     Active Substance: HUMAN IMMUNOGLOBULIN G
     Indication: IMMUNODEFICIENCY COMMON VARIABLE
     Route: 058
  21. AMOXICILLIN. [Concomitant]
     Active Substance: AMOXICILLIN
  22. ACIPHEX [Concomitant]
     Active Substance: RABEPRAZOLE SODIUM
  23. BUSPAR [Concomitant]
     Active Substance: BUSPIRONE HYDROCHLORIDE

REACTIONS (2)
  - Bronchitis [Unknown]
  - Urinary tract infection [Unknown]
